FAERS Safety Report 7791435-8 (Version None)
Quarter: 2011Q4

REPORT INFORMATION
  Report Type: 
  Country: None (occurrence: None)
  Receive Date: 20111003
  Receipt Date: 20110922
  Transmission Date: 20120403
  Serious: Yes (Hospitalization, Other)
  Sender: FDA-Public Use
  Company Number: US-JNJFOC-20110910736

PATIENT
  Sex: Female
  Weight: 60.33 kg

DRUGS (8)
  1. DILTIAZEM HCL [Concomitant]
     Indication: HYPERTENSION
     Route: 048
  2. TYLENOL-500 [Concomitant]
     Indication: PAIN
     Dosage: 2-3 TIMES PER DAY AS NEEDED
     Route: 048
  3. PROPRANOLOL [Concomitant]
     Indication: HYPERTENSION
     Route: 048
  4. DURAGESIC-100 [Suspect]
     Indication: PAIN
     Route: 062
     Dates: start: 20000101
  5. FENTANYL-100 [Suspect]
     Indication: BACK PAIN
     Route: 062
  6. FENTANYL-100 [Suspect]
     Indication: BACK PAIN
     Route: 062
     Dates: start: 20070101
  7. AMLODIPINE [Concomitant]
     Indication: HYPERTENSION
     Route: 048
  8. TEMAZEPAM [Concomitant]
     Indication: SLEEP DISORDER
     Route: 048

REACTIONS (8)
  - PRODUCT QUALITY ISSUE [None]
  - RENAL CANCER [None]
  - DRUG ADMINISTRATION ERROR [None]
  - WRONG TECHNIQUE IN DRUG USAGE PROCESS [None]
  - PAIN [None]
  - DEPENDENCE [None]
  - OOPHORECTOMY [None]
  - BENIGN OVARIAN TUMOUR [None]
